FAERS Safety Report 11832203 (Version 2)
Quarter: 2015Q4

REPORT INFORMATION
  Report Type: Spontaneous
  Country: US (occurrence: US)
  Receive Date: 20151214
  Receipt Date: 20151221
  Transmission Date: 20160305
  Serious: Yes (Other)
  Sender: FDA-Public Use
  Company Number: US-BAYER-2015-482046

PATIENT
  Age: 49 Year
  Sex: Male
  Weight: 81.63 kg

DRUGS (8)
  1. CENTRUM [Concomitant]
     Active Substance: VITAMINS
  2. BAYER GENUINE ASPIRIN [Suspect]
     Active Substance: ASPIRIN
     Indication: ISCHAEMIC HEART DISEASE PROPHYLAXIS
  3. BAYER GENUINE ASPIRIN [Suspect]
     Active Substance: ASPIRIN
     Indication: INFLAMMATION
  4. BAYER GENUINE ASPIRIN [Suspect]
     Active Substance: ASPIRIN
     Indication: CEREBROVASCULAR ACCIDENT PROPHYLAXIS
  5. BAYER GENUINE ASPIRIN [Suspect]
     Active Substance: ASPIRIN
     Indication: TOOTHACHE
     Dosage: 1/2-1 DF,QD
     Route: 048
  6. VITAMIN E [Concomitant]
     Active Substance: .ALPHA.-TOCOPHEROL
  7. ZINC [Concomitant]
     Active Substance: ZINC\ZINC CHLORIDE
  8. BAYER GENUINE ASPIRIN [Suspect]
     Active Substance: ASPIRIN
     Indication: NEOPLASM PROPHYLAXIS

REACTIONS (4)
  - Product use issue [None]
  - Arthritis infective [None]
  - Haemarthrosis [None]
  - Paraesthesia [None]
